FAERS Safety Report 19766858 (Version 1)
Quarter: 2021Q3

REPORT INFORMATION
  Report Type: Spontaneous
  Country: JP (occurrence: JP)
  Receive Date: 20210831
  Receipt Date: 20210831
  Transmission Date: 20211014
  Serious: Yes (Other)
  Sender: FDA-Public Use
  Company Number: JP-ABBVIE-21K-087-4058166-00

PATIENT

DRUGS (1)
  1. HUMIRA [Suspect]
     Active Substance: ADALIMUMAB
     Indication: PRODUCT USED FOR UNKNOWN INDICATION
     Route: 058

REACTIONS (5)
  - Seizure [Unknown]
  - Rash [Unknown]
  - Nervous system disorder [Unknown]
  - Blood sodium decreased [Unknown]
  - Abscess [Unknown]

NARRATIVE: CASE EVENT DATE: 202107
